FAERS Safety Report 10177458 (Version 1)
Quarter: 2014Q2

REPORT INFORMATION
  Report Type: Report from Study
  Country: US (occurrence: US)
  Receive Date: 20140516
  Receipt Date: 20140516
  Transmission Date: 20141212
  Serious: Yes (Hospitalization)
  Sender: FDA-Public Use
  Company Number: PHEH2014US009458

PATIENT
  Sex: Male

DRUGS (14)
  1. AFINITOR [Suspect]
     Dosage: 10 MG, QD
     Route: 048
  2. SANDOSTATIN LAR [Suspect]
  3. ASPIRIN [Concomitant]
  4. CHLORPROMAZINE HCL [Concomitant]
  5. LIPITOR [Concomitant]
  6. LOMOTIL [Concomitant]
  7. LOPRESSOR [Concomitant]
  8. MAGNESIUM CITRATE [Concomitant]
  9. MECLIZINE HCL [Concomitant]
  10. METOCLOL//METOCLOPRAMIDE HYDROCHLORIDE [Concomitant]
  11. OXYCODON HCL [Concomitant]
  12. PLAVIX [Concomitant]
  13. PRILOSEC [Concomitant]
  14. PROCHLORPERAZ MALEATE [Concomitant]

REACTIONS (8)
  - Fall [Unknown]
  - Pneumonia [Recovered/Resolved]
  - Pyrexia [Unknown]
  - Nasal congestion [Unknown]
  - Cough [Unknown]
  - Flushing [Unknown]
  - Diarrhoea [Unknown]
  - Fluid intake reduced [Unknown]
